FAERS Safety Report 12803758 (Version 2)
Quarter: 2016Q4

REPORT INFORMATION
  Report Type: Spontaneous
  Country: JP (occurrence: JP)
  Receive Date: 20161003
  Receipt Date: 20161026
  Transmission Date: 20170207
  Serious: Yes (Hospitalization)
  Sender: FDA-Public Use
  Company Number: JP-GILEAD-2016-0228932AA

PATIENT
  Age: 73 Year
  Sex: Female

DRUGS (9)
  1. REBAMIPIDE [Concomitant]
     Active Substance: REBAMIPIDE
     Dosage: 100 MG, BID, AFTER BREAKFAST AND DINNER
  2. ADETPHOS [Concomitant]
     Active Substance: ADENOSINE TRIPHOSPHATE
     Dosage: 20 MG, TID, AFTER BREAKFAST, LUNCH AND DINNER
  3. EPERISONE                          /01071502/ [Concomitant]
     Dosage: 50 MG, BID, AFTER BREAKFAST AND DINNER
  4. BONALON [Concomitant]
     Active Substance: ALENDRONATE SODIUM
     Dosage: 35 MG, UNK
     Route: 048
  5. LOXONIN [Concomitant]
     Active Substance: LOXOPROFEN SODIUM
     Dosage: 1 DF, UNK
     Route: 062
  6. CELECOX [Concomitant]
     Active Substance: CELECOXIB
     Dosage: UNK, PRN
  7. HARVONI [Suspect]
     Active Substance: LEDIPASVIR\SOFOSBUVIR
     Indication: CHRONIC HEPATITIS C
     Dosage: 1 DF, QD, AFTER BREAKFAST
     Route: 048
     Dates: start: 20160628
  8. MAGMITT [Concomitant]
     Active Substance: MAGNESIUM OXIDE
     Dosage: 330 MG, TID, AFTER BREAKFAST, LUNCH AND DINNER
  9. CELECOX [Concomitant]
     Active Substance: CELECOXIB
     Dosage: 100 MG, BID AFTER BREAKFAST AND DINNER

REACTIONS (1)
  - Spinal column stenosis [Recovering/Resolving]
